FAERS Safety Report 10173250 (Version 1)
Quarter: 2014Q2

REPORT INFORMATION
  Report Type: Spontaneous
  Country: US (occurrence: US)
  Receive Date: 20140515
  Receipt Date: 20140515
  Transmission Date: 20141212
  Serious: No
  Sender: FDA-Public Use
  Company Number: US-PFIZER INC-2014131930

PATIENT
  Age: 60 Year
  Sex: Female
  Weight: 38.1 kg

DRUGS (5)
  1. ESTRING [Suspect]
     Indication: VULVOVAGINAL DRYNESS
     Dosage: UNK
  2. SYNTHROID [Concomitant]
     Dosage: UNK
  3. FOSAMAX [Concomitant]
     Dosage: UNK
  4. CELEXA [Concomitant]
     Dosage: UNK
  5. VALTREX [Concomitant]
     Dosage: UNK

REACTIONS (2)
  - Urine flow decreased [Unknown]
  - Low density lipoprotein increased [Unknown]
